FAERS Safety Report 9482092 (Version 2)
Quarter: 2013Q3

REPORT INFORMATION
  Report Type: Report from Study
  Country: US (occurrence: US)
  Receive Date: 20130828
  Receipt Date: 20130926
  Transmission Date: 20140515
  Serious: Yes (Hospitalization)
  Sender: FDA-Public Use
  Company Number: PHHO2013US011084

PATIENT
  Age: 74 Year
  Sex: Male
  Weight: 64.4 kg

DRUGS (20)
  1. AFINITOR [Suspect]
     Indication: THYROID CANCER
     Dosage: 10 MG, QD
     Route: 048
     Dates: start: 20130618, end: 20130911
  2. CHLORHEXIDINE [Concomitant]
     Dosage: UNK
     Dates: start: 20130530
  3. DECADRON                                /CAN/ [Concomitant]
     Dosage: UNK
     Dates: start: 20130805
  4. DULOXETINE [Concomitant]
     Dosage: UNK
     Dates: start: 20130530
  5. FENTANYL [Concomitant]
     Dosage: UNK
     Dates: start: 20130530
  6. ACETAMINOPHEN [Concomitant]
     Dosage: UNK
     Dates: start: 20130530
  7. HYDROCORTISONE [Concomitant]
     Dosage: UNK
     Dates: start: 20130409
  8. HYDROMORPHONE [Concomitant]
     Dosage: UNK
     Dates: start: 20130530
  9. LEVOXYL [Concomitant]
     Dosage: UNK
     Dates: start: 20130213
  10. LORAZEPAM [Concomitant]
     Dosage: UNK
     Dates: start: 20130228
  11. METFORMIN [Concomitant]
     Dosage: UNK
     Dates: start: 20121214
  12. METRONIDAZOLE [Concomitant]
     Dosage: UNK
     Dates: start: 20130530
  13. DAILY MULTIVITAMIN [Concomitant]
     Dosage: UNK
     Dates: start: 20130530
  14. NOVOLOG [Concomitant]
     Dosage: UNK
     Dates: start: 20130530
  15. OMEPRAZOLE [Concomitant]
     Dosage: UNK
     Dates: start: 20130409
  16. ROBITUSSIN DM [Concomitant]
     Dosage: UNK
     Dates: start: 20130905, end: 20130919
  17. SENNA [Concomitant]
     Dosage: UNK
     Dates: start: 20130530
  18. SIMVASTATIN [Concomitant]
     Dosage: UNK
     Dates: start: 20121214
  19. TESSALON PERLE [Concomitant]
     Dosage: UNK
     Dates: start: 20130409
  20. VENLAFAXINE [Concomitant]
     Dosage: UNK
     Dates: start: 20130726

REACTIONS (2)
  - Febrile neutropenia [Unknown]
  - Pneumonia [Unknown]
